FAERS Safety Report 23787502 (Version 3)
Quarter: 2024Q2

REPORT INFORMATION
  Report Type: Spontaneous
  Country: US (occurrence: US)
  Receive Date: 20240426
  Receipt Date: 20240602
  Transmission Date: 20240715
  Serious: No
  Sender: FDA-Public Use
  Company Number: US-AstraZeneca-CH-00612706A

PATIENT
  Age: 12 Year
  Sex: Female

DRUGS (1)
  1. STRENSIQ [Suspect]
     Active Substance: ASFOTASE ALFA
     Indication: Product used for unknown indication
     Dosage: 33.2 MILLIGRAM, SIX TIMES/WEEK
     Route: 065
     Dates: start: 20230209

REACTIONS (2)
  - Blood phosphorus increased [Recovered/Resolved]
  - Loose tooth [Unknown]

NARRATIVE: CASE EVENT DATE: 20240320
